FAERS Safety Report 4290352-8 (Version None)
Quarter: 2004Q1

REPORT INFORMATION
  Report Type: 
  Country: None (occurrence: None)
  Receive Date: 20040210
  Receipt Date: 20040206
  Transmission Date: 20041129
  Serious: Yes (Life-Threatening, Hospitalization)
  Sender: FDA-Public Use
  Company Number: PHHO2004BR02077

PATIENT
  Age: 33 Year
  Sex: Male

DRUGS (2)
  1. GLEEVEC [Suspect]
     Indication: CHRONIC MYELOID LEUKAEMIA
     Dosage: 400 MG, QD
     Route: 048
     Dates: start: 20031120, end: 20040101
  2. ALLOPURINOL [Concomitant]
     Dates: start: 20031120, end: 20031214

REACTIONS (11)
  - ABDOMINAL PAIN [None]
  - ACUTE ABDOMEN [None]
  - BLOOD URIC ACID INCREASED [None]
  - ERYTHEMA [None]
  - LEUKOCYTOSIS [None]
  - PALPITATIONS [None]
  - PYREXIA [None]
  - SPLENIC RUPTURE [None]
  - SPLENOMEGALY [None]
  - TACHYPNOEA [None]
  - THROMBOCYTHAEMIA [None]
